FAERS Safety Report 9704946 (Version 1)
Quarter: 2013Q4

REPORT INFORMATION
  Report Type: Report from Study
  Country: US (occurrence: US)
  Receive Date: 20131122
  Receipt Date: 20131122
  Transmission Date: 20140711
  Serious: Yes (Other)
  Sender: FDA-Public Use
  Company Number: US-ABBVIE-13P-163-1169803-00

PATIENT
  Sex: Female
  Weight: 71.28 kg

DRUGS (12)
  1. HUMIRA [Suspect]
     Indication: RHEUMATOID ARTHRITIS
  2. HUMIRA [Suspect]
     Dates: start: 2009
  3. ACTEMRA [Suspect]
     Indication: RHEUMATOID ARTHRITIS
  4. METHOTREXATE [Concomitant]
     Indication: RHEUMATOID ARTHRITIS
  5. BENICAR [Concomitant]
     Indication: HYPERTENSION
  6. FOLIC ACID [Concomitant]
     Indication: VITAMIN SUPPLEMENTATION
  7. PROAIR [Concomitant]
     Indication: ASTHMA
     Route: 055
  8. EPIPEN [Concomitant]
     Indication: ARTHROPOD STING
     Dates: start: 1996
  9. MULTIVITAMIN [Concomitant]
     Indication: VITAMIN SUPPLEMENTATION
  10. VITAMIN D [Concomitant]
     Indication: VITAMIN SUPPLEMENTATION
  11. IBUPROFEN [Concomitant]
     Indication: PAIN
  12. ULTRAM [Concomitant]
     Indication: PAIN

REACTIONS (12)
  - Joint dislocation [Recovered/Resolved]
  - Tendon rupture [Recovered/Resolved]
  - Diaphragmatic hernia [Recovered/Resolved]
  - Hiatus hernia [Recovered/Resolved]
  - Adhesion [Recovered/Resolved]
  - Fall [Recovered/Resolved]
  - Injection site pain [Not Recovered/Not Resolved]
  - Injection site urticaria [Not Recovered/Not Resolved]
  - Injection site erythema [Not Recovered/Not Resolved]
  - Injection site warmth [Not Recovered/Not Resolved]
  - Blood cholesterol increased [Recovered/Resolved]
  - Rheumatoid arthritis [Not Recovered/Not Resolved]
